FAERS Safety Report 14320460 (Version 2)
Quarter: 2018Q1

REPORT INFORMATION
  Report Type: Report from Study
  Country: FI (occurrence: FI)
  Receive Date: 20171222
  Receipt Date: 20180111
  Transmission Date: 20180509
  Serious: Yes (Disabling, Other)
  Sender: FDA-Public Use
  Company Number: FI-BAUSCH-BL-2017-034329

PATIENT
  Age: 46 Year
  Sex: Male

DRUGS (3)
  1. DIAZEPAM. [Suspect]
     Active Substance: DIAZEPAM
     Indication: FRONTAL LOBE EPILEPSY
     Route: 065
  2. CLONAZEPAM TAB [Suspect]
     Active Substance: CLONAZEPAM
     Indication: FRONTAL LOBE EPILEPSY
     Route: 065
  3. LEVETIRACETAM. [Suspect]
     Active Substance: LEVETIRACETAM
     Indication: FRONTAL LOBE EPILEPSY
     Route: 065

REACTIONS (11)
  - Middle insomnia [Unknown]
  - Obstructive airways disorder [Unknown]
  - Fatigue [Unknown]
  - Depressed mood [Unknown]
  - Insomnia [Unknown]
  - Nervousness [Unknown]
  - Upper airway obstruction [Unknown]
  - Sleep apnoea syndrome [Unknown]
  - Terminal insomnia [Unknown]
  - Poor quality sleep [Unknown]
  - Anxiety [Unknown]
